FAERS Safety Report 15189105 (Version 1)
Quarter: 2018Q3

REPORT INFORMATION
  Report Type: Spontaneous
  Country: IT (occurrence: IT)
  Receive Date: 20180724
  Receipt Date: 20180724
  Transmission Date: 20181010
  Serious: Yes (Hospitalization)
  Sender: FDA-Public Use
  Company Number: IT-AUROBINDO-AUR-APL-2018-036785

PATIENT
  Age: 35 Year
  Sex: Male

DRUGS (4)
  1. QUETIAPINE. [Suspect]
     Active Substance: QUETIAPINE
     Indication: BIPOLAR DISORDER
     Dosage: 600 MILLIGRAM, DAILY
     Route: 048
  2. QUETIAPINE. [Suspect]
     Active Substance: QUETIAPINE
     Route: 048
  3. AKINETON                           /00079503/ [Suspect]
     Active Substance: BIPERIDEN LACTATE
     Indication: PARKINSONISM
     Dosage: 1 DOSAGE FORM, EVERY WEEK
     Route: 030
  4. RIVOTRIL [Suspect]
     Active Substance: CLONAZEPAM
     Indication: BIPOLAR DISORDER
     Dosage: 5 DOSAGE FORM, DAILY
     Route: 048

REACTIONS (3)
  - Gait disturbance [Recovering/Resolving]
  - Sedation [Recovering/Resolving]
  - Malaise [Recovering/Resolving]

NARRATIVE: CASE EVENT DATE: 20180113
